FAERS Safety Report 12309926 (Version 1)
Quarter: 2016Q2

REPORT INFORMATION
  Report Type: Spontaneous
  Country: US (occurrence: US)
  Receive Date: 20160427
  Receipt Date: 20160427
  Transmission Date: 20160815
  Serious: No
  Sender: FDA-Public Use
  Company Number: US-GLAXOSMITHKLINE-US2016048804

PATIENT
  Sex: Male

DRUGS (2)
  1. ACITRETIN CAPSULE [Suspect]
     Active Substance: ACITRETIN
     Dosage: UNK
     Dates: start: 20160320
  2. ACITRETIN CAPSULE [Suspect]
     Active Substance: ACITRETIN
     Indication: PSORIASIS
     Dosage: 25 MG, QD
     Route: 048
     Dates: start: 20160320

REACTIONS (3)
  - Hypertension [Not Recovered/Not Resolved]
  - Drug monitoring procedure not performed [Unknown]
  - Sensory disturbance [Not Recovered/Not Resolved]

NARRATIVE: CASE EVENT DATE: 2016
